FAERS Safety Report 6391627-9 (Version None)
Quarter: 2009Q4

REPORT INFORMATION
  Report Type: 
  Country: None (occurrence: None)
  Receive Date: 20091007
  Receipt Date: 20090804
  Transmission Date: 20100525
  Serious: No
  Sender: FDA-Public Use
  Company Number: A0800451A

PATIENT
  Age: 3 Year
  Sex: Male

DRUGS (10)
  1. ADVAIR DISKUS 100/50 [Suspect]
     Indication: ASTHMA
     Dosage: 2PUFF TWICE PER DAY
     Route: 055
     Dates: start: 20080707, end: 20081101
  2. ADVAIR DISKUS 100/50 [Suspect]
     Route: 055
     Dates: start: 20090717, end: 20090729
  3. ATROPINE [Concomitant]
  4. ALBUTEROL [Concomitant]
  5. ZYRTEC [Concomitant]
  6. SINGULAIR [Concomitant]
  7. CLARITIN [Concomitant]
     Dates: end: 20081210
  8. XYZAL [Concomitant]
  9. VERAMYST [Concomitant]
  10. NASONEX [Concomitant]

REACTIONS (6)
  - CRYING [None]
  - DISSOCIATION [None]
  - DRUG INEFFECTIVE [None]
  - ENURESIS [None]
  - MIDDLE INSOMNIA [None]
  - SOMNOLENCE [None]
